FAERS Safety Report 7880505-1 (Version None)
Quarter: 2011Q4

REPORT INFORMATION
  Report Type: 
  Country: None (occurrence: None)
  Receive Date: 20111101
  Receipt Date: 20111026
  Transmission Date: 20120403
  Serious: Yes (Death)
  Sender: FDA-Public Use
  Company Number: PHHY2011JP65790

PATIENT
  Age: 45 Year
  Sex: Male
  Weight: 80 kg

DRUGS (80)
  1. ACETAMINOPHEN [Concomitant]
     Dosage: 12.5 G, UNK
     Route: 048
     Dates: start: 20090814, end: 20090814
  2. CEFAZOLIN SODIUM [Concomitant]
     Dosage: 9 G, UNK
     Route: 048
     Dates: start: 20090728
  3. LENDORMIN [Concomitant]
     Dosage: 3 DF, UNK
     Route: 048
     Dates: start: 20090812, end: 20090909
  4. WHITE PETROLEUM [Concomitant]
     Dosage: 2000 G, UNK
     Dates: start: 20090828, end: 20090914
  5. DOPAMINE HCL [Concomitant]
     Dosage: 8 DF, UNK
     Dates: start: 20090725
  6. CALCIUM CARBONATE [Concomitant]
     Dosage: 3 DF, UNK
     Dates: start: 20090725
  7. DEXTROSE [Concomitant]
     Dosage: 8.5 DF, UNK
  8. DEXTROSE [Concomitant]
     Dosage: 8.2 DF, UNK
  9. PREDNISOLONE [Concomitant]
     Dosage: 5 DF, UNK
     Dates: start: 20090826, end: 20090831
  10. STADOL [Concomitant]
     Dosage: 2 DF, UNK
     Dates: start: 20090729, end: 20090805
  11. CEFAZOLIN [Concomitant]
     Dosage: 2 G, UNK
     Dates: start: 20090725, end: 20090731
  12. SOLITA-T NO.4 [Concomitant]
     Dosage: 7 DF, UNK
     Dates: start: 20090901
  13. BOSMIN [Concomitant]
     Dosage: 12 DF, UNK
     Dates: start: 20090915
  14. VEEN D [Concomitant]
     Dosage: 2 DF, UNK
     Dates: start: 20090829, end: 20090902
  15. KETALAR [Concomitant]
     Dosage: 3 DF, UNK
     Dates: start: 20090725, end: 20090726
  16. MIDAZOLAM HCL [Concomitant]
     Dosage: 24 DF, UNK
     Dates: start: 20090725, end: 20090813
  17. HUMULIN R [Concomitant]
     Dosage: 0.1 DF, UNK
     Dates: start: 20090830, end: 20090914
  18. HEPARIN SODIUM [Concomitant]
     Dosage: 1 DF, UNK
     Dates: start: 20090730, end: 20090810
  19. MEROPENEM [Suspect]
     Indication: INFECTION
     Dosage: 0.5 G, BID
     Dates: start: 20090816, end: 20090820
  20. LEVOFLOXACIN [Concomitant]
     Dosage: 6 DF, UNK
     Route: 048
     Dates: start: 20090825, end: 20090904
  21. RINDERON A [Concomitant]
     Dosage: 10 G, UNK
     Dates: start: 20090901
  22. CHLOR-TRIMETON [Concomitant]
     Dosage: 1 DF, UNK
     Dates: start: 20090823, end: 20090823
  23. SOLITA-T NO.1 [Concomitant]
     Dosage: 5 DF, UNK
     Dates: start: 20090725, end: 20090901
  24. SOLITA-T NO.3 [Concomitant]
     Dosage: 2 DF, UNK
     Dates: start: 20090725, end: 20090828
  25. PANTOL [Concomitant]
     Dosage: 2 DF, UNK
     Dates: start: 20090729
  26. HICALIQ RF [Concomitant]
     Dosage: 1 DF, UNK
     Dates: start: 20090729, end: 20090813
  27. BISOLVON [Concomitant]
     Dosage: 4 DF, UNK
     Dates: start: 20090729
  28. VANCOMYCIN HCL [Concomitant]
     Dosage: 4 DF, UNK
     Dates: start: 20090814, end: 20090901
  29. PIPERACILLIN SODIUM [Concomitant]
     Dosage: 4 G, UNK
     Dates: start: 20090731, end: 20090810
  30. DIAZEPAM [Concomitant]
     Dosage: 1 DF, UNK
     Dates: start: 20090815, end: 20090815
  31. SODIUM BICARBONATE [Concomitant]
     Dosage: 1 DF, UNK
  32. METHOXAMINE HYDROCHLORIDE [Concomitant]
     Dosage: 2 DF, UNK
     Dates: start: 20090725, end: 20090725
  33. BETAMETHASONE [Concomitant]
     Dosage: 5 DF, UNK
     Dates: start: 20090901, end: 20090911
  34. REMINARON [Concomitant]
     Dosage: 4 DF, UNK
     Dates: start: 20090831
  35. LAC B [Concomitant]
     Dosage: 9 G, UNK
     Route: 048
     Dates: start: 20090728
  36. RINDERON A [Concomitant]
     Dosage: 2 MG, DAILY
     Dates: start: 20090911
  37. ATARAX [Concomitant]
     Dosage: 1 DF, UNK
     Dates: start: 20090821, end: 20090827
  38. ASPARTATE POTASSIUM [Concomitant]
     Dosage: 2 DF, UNK
     Dates: start: 20090821
  39. ALBUMINAR [Concomitant]
     Dosage: 2 DF, UNK
     Dates: start: 20090814
  40. DOPAMINE HCL [Concomitant]
     Dosage: 4 DF, UNK
  41. EPHEDRIN [Concomitant]
     Dosage: 1 DF, UNK
     Dates: start: 20090725, end: 20090725
  42. NOREPINEPHRINE BITARTRATE [Concomitant]
     Dosage: 31 DF, UNK
     Dates: start: 20090725
  43. VITAJECT [Concomitant]
     Dosage: 1 DF, UNK
     Dates: start: 20090729, end: 20090813
  44. HESPANDER [Concomitant]
     Dosage: 2 DF, UNK
     Dates: start: 20090814, end: 20090829
  45. NITROGLYCERIN [Concomitant]
     Dosage: 2 DF, UNK
     Dates: start: 20090806, end: 20090807
  46. SODIUM BICARBONATE [Concomitant]
     Dosage: 2 DF, UNK
     Dates: start: 20090914
  47. LACTEC [Concomitant]
     Dosage: 1 DF, UNK
     Dates: start: 20090814, end: 20090827
  48. AMBISOME [Concomitant]
     Dosage: 3 DF, UNK
     Dates: start: 20090914, end: 20090914
  49. DEXTROSE [Concomitant]
     Dosage: 5 DF, UNK
  50. ISOTONIC SODIUM CHLORIDE SOLUTION [Concomitant]
     Dosage: 4 DF, UNK
  51. NAFAMOSTAT MESILATE [Concomitant]
     Dosage: 8 DF, UNK
     Dates: start: 20090725, end: 20090728
  52. NEOAMIYU [Concomitant]
     Dosage: 1 DF, UNK
     Dates: start: 20090729, end: 20090813
  53. FIRSTCIN [Concomitant]
     Dosage: 0.5 G, UNK
     Dates: start: 20090811, end: 20090814
  54. ZANTAC [Concomitant]
     Dosage: 4 DF, UNK
     Dates: start: 20090725, end: 20090813
  55. PREDNISOLONE [Concomitant]
     Dosage: 100 MG, DAILY
     Dates: start: 20090826
  56. ISOTONIC SODIUM CHLORIDE SOLUTION [Concomitant]
     Dosage: 4 DF, UNK
     Dates: start: 20090728
  57. ISOTONIC SODIUM CHLORIDE SOLUTION [Concomitant]
     Dosage: 1 DF, UNK
     Dates: end: 20090815
  58. VITAMEDIN [Concomitant]
     Dosage: 1 DF, UNK
     Dates: start: 20090725
  59. BICARBON [Concomitant]
     Dosage: 4 DF, UNK
     Dates: start: 20090725
  60. DICLOFENAC SODIUM [Suspect]
     Dosage: 2 DF, DAILY
     Route: 054
     Dates: start: 20090814, end: 20090825
  61. PHENYTOIN SODIUM CAP [Suspect]
     Indication: GRAND MAL CONVULSION
     Dosage: 1 DF, DAILY
     Route: 042
     Dates: start: 20090815, end: 20090820
  62. URSO 250 [Concomitant]
     Dosage: 6 DF, UNK
     Route: 048
     Dates: start: 20090804, end: 20090828
  63. CONIEL [Concomitant]
     Dosage: 2 DF, UNK
     Route: 048
     Dates: start: 20090813, end: 20090909
  64. RINDERON A [Concomitant]
     Dosage: 6 MG, DAILY
     Dates: start: 20090905
  65. NEO-MINOPHAGEN C [Concomitant]
     Dosage: 2 DF, UNK
     Dates: start: 20090805, end: 20090817
  66. DEXTROSE [Concomitant]
     Dosage: 2 DF, UNK
     Dates: start: 20090914
  67. DEXTROSE [Concomitant]
     Dosage: 5 DF, UNK
  68. LASIX [Concomitant]
     Dosage: 8 DF, UNK
     Dates: start: 20090726
  69. BUPRENORPHINE HCL [Concomitant]
     Dosage: 4 DF, UNK
     Dates: start: 20090803, end: 20090911
  70. GLUCONSAN K [Concomitant]
     Dosage: 7.5 G, UNK
     Route: 048
     Dates: start: 20090822, end: 20090824
  71. BARAMYCIN [Concomitant]
     Dosage: 1000 G, UNK
     Dates: start: 20090826, end: 20090911
  72. ALBUMINAR [Concomitant]
     Dosage: 4 DF, UNK
     Dates: end: 20090910
  73. PROPOFOL [Concomitant]
     Dosage: 4 DF, UNK
     Dates: start: 20090828, end: 20090914
  74. KENKETSU VENOGLOBULIN-IH [Concomitant]
     Dosage: 2 DF, UNK
     Dates: start: 20090830
  75. KENKETSU VENOGLOBULIN-IH [Concomitant]
     Dosage: 1 DF, UNK
     Dates: end: 20090914
  76. DEXTROSE [Concomitant]
     Dosage: 9 DF, UNK
  77. DEXTROSE [Concomitant]
     Dosage: 2 DF, UNK
  78. ELASPOL [Concomitant]
     Dosage: 4 DF, UNK
     Dates: start: 20090725
  79. DOBUTREX [Concomitant]
     Dosage: 8 DF, UNK
     Dates: start: 20090725, end: 20090726
  80. HYDROCORTONE [Concomitant]
     Dosage: 2 DF, UNK
     Dates: start: 20090914, end: 20090914

REACTIONS (28)
  - RESPIRATORY DISORDER [None]
  - PROTEIN TOTAL DECREASED [None]
  - TOXIC EPIDERMAL NECROLYSIS [None]
  - PYREXIA [None]
  - BLOOD PRESSURE DECREASED [None]
  - PNEUMONIA [None]
  - SKIN LESION [None]
  - SKIN EXFOLIATION [None]
  - SCROTAL ULCER [None]
  - BLOOD CREATININE INCREASED [None]
  - GENERALISED ERYTHEMA [None]
  - SKIN EROSION [None]
  - C-REACTIVE PROTEIN INCREASED [None]
  - OCULAR HYPERAEMIA [None]
  - WHITE BLOOD CELL COUNT INCREASED [None]
  - SKIN DISCOLOURATION [None]
  - ASPARTATE AMINOTRANSFERASE INCREASED [None]
  - WOUND [None]
  - ERYTHEMA MULTIFORME [None]
  - LIP EROSION [None]
  - SKIN ATROPHY [None]
  - PETECHIAE [None]
  - NIKOLSKY'S SIGN [None]
  - MULTI-ORGAN FAILURE [None]
  - RASH [None]
  - ERYTHEMA [None]
  - ANTIBIOTIC RESISTANT STAPHYLOCOCCUS TEST POSITIVE [None]
  - SCAB [None]
